FAERS Safety Report 5778420-2 (Version None)
Quarter: 2008Q2

REPORT INFORMATION
  Report Type: 
  Country: None (occurrence: None)
  Receive Date: 20080619
  Receipt Date: 20071220
  Transmission Date: 20081010
  Serious: No
  Sender: FDA-Public Use
  Company Number: A0700001A

PATIENT
  Age: 22 Year
  Sex: Male

DRUGS (3)
  1. ZYBAN [Suspect]
     Dosage: 150MG PER DAY
     Route: 048
     Dates: start: 20071118, end: 20071121
  2. NICOTINE [Concomitant]
  3. BEER [Concomitant]

REACTIONS (2)
  - ENURESIS [None]
  - SOMNAMBULISM [None]
